FAERS Safety Report 15369343 (Version 1)
Quarter: 2018Q3

REPORT INFORMATION
  Report Type: Spontaneous
  Country: US (occurrence: US)
  Receive Date: 20180911
  Receipt Date: 20180911
  Transmission Date: 20181010
  Serious: Yes (Death, Hospitalization)
  Sender: FDA-Public Use
  Company Number: US-ROCHE-2182301

PATIENT
  Age: 6 Decade
  Sex: Male

DRUGS (1)
  1. RITUXAN [Suspect]
     Active Substance: RITUXIMAB
     Indication: GRANULOMATOSIS WITH POLYANGIITIS
     Route: 065
     Dates: start: 20180831

REACTIONS (3)
  - Renal failure [Unknown]
  - Fluid retention [Unknown]
  - Death [Fatal]

NARRATIVE: CASE EVENT DATE: 20180902
